FAERS Safety Report 13900629 (Version 1)
Quarter: 2017Q3

REPORT INFORMATION
  Report Type: Spontaneous
  Country: US (occurrence: US)
  Receive Date: 20170824
  Receipt Date: 20170824
  Transmission Date: 20171127
  Serious: Yes (Congenital Anomaly, Other)
  Sender: FDA-Public Use
  Company Number: PHHY2017US121618

PATIENT
  Sex: Male
  Weight: 1.3 kg

DRUGS (6)
  1. MYCOPHENOLATE MOFETIL. [Suspect]
     Active Substance: MYCOPHENOLATE MOFETIL
     Indication: FOETAL EXPOSURE DURING PREGNANCY
     Dosage: MATERNAL DOSE: 500 MG TWICE DAILY
     Route: 064
  2. HYDROXYCHLOROQUINE [Concomitant]
     Active Substance: HYDROXYCHLOROQUINE
     Indication: FOETAL EXPOSURE DURING PREGNANCY
     Dosage: MATERNAL DOSE: 200MG/DAY
     Route: 064
  3. ASPIRIN. [Concomitant]
     Active Substance: ASPIRIN
     Indication: FOETAL EXPOSURE DURING PREGNANCY
     Dosage: MATERNAL DOSE: 81 MG ONCE DAILY
     Route: 064
  4. MYCOPHENOLATE MOFETIL. [Suspect]
     Active Substance: MYCOPHENOLATE MOFETIL
     Dosage: MATERNAL DOSE: 1000 MG TWICE DAILY
     Route: 064
  5. HEPARIN [Concomitant]
     Active Substance: HEPARIN SODIUM
     Indication: FOETAL EXPOSURE DURING PREGNANCY
     Dosage: MATERNAL DOSE: 65 MG TWICE DAILY
     Route: 064
  6. PREDNISONE. [Concomitant]
     Active Substance: PREDNISONE
     Indication: FOETAL EXPOSURE DURING PREGNANCY
     Dosage: MATERNAL DOSE: 10 MG/DAY
     Route: 064

REACTIONS (8)
  - Foetal exposure during pregnancy [Unknown]
  - Cardiomegaly [Unknown]
  - Atrial septal defect [Unknown]
  - Intraventricular haemorrhage [Recovered/Resolved]
  - Patent ductus arteriosus [Recovering/Resolving]
  - Right ventricular hypertrophy [Unknown]
  - Vascular malformation [Recovering/Resolving]
  - Tricuspid valve incompetence [Unknown]
